FAERS Safety Report 7991947-8 (Version None)
Quarter: 2011Q4

REPORT INFORMATION
  Report Type: 
  Country: None (occurrence: None)
  Receive Date: 20111219
  Receipt Date: 20110719
  Transmission Date: 20120403
  Serious: No
  Sender: FDA-Public Use
  Company Number: US-ASTRAZENECA-2011SE43108

PATIENT
  Age: 70 Year
  Sex: Female

DRUGS (2)
  1. CRESTOR [Suspect]
     Indication: HYPERCHOLESTEROLAEMIA
     Route: 048
     Dates: start: 20110706
  2. OTHER STATIN MEDICATION [Concomitant]

REACTIONS (5)
  - MYALGIA [None]
  - INSOMNIA [None]
  - NAUSEA [None]
  - NIGHT SWEATS [None]
  - THIRST [None]
